FAERS Safety Report 8261524-2 (Version None)
Quarter: 2012Q2

REPORT INFORMATION
  Report Type: 
  Country: None (occurrence: None)
  Receive Date: 20120402
  Receipt Date: 20120321
  Transmission Date: 20120825
  Serious: Yes (Hospitalization)
  Sender: FDA-Public Use
  Company Number: UTC-016581

PATIENT
  Age: 50 Year
  Sex: Male

DRUGS (4)
  1. DIURETICS (DIURETICS) [Concomitant]
  2. REMODULIN [Suspect]
     Indication: PULMONARY ARTERIAL HYPERTENSION
     Dosage: 60.48 UG/KG (0.042 UG/KG, 1 IN 1 MIN), SUBCUTANEOUS
     Route: 058
     Dates: start: 20110412
  3. COUMADIN [Concomitant]
  4. TRACLEER [Concomitant]

REACTIONS (3)
  - INFUSION SITE ABSCESS [None]
  - INFUSION SITE INFECTION [None]
  - MALAISE [None]
